FAERS Safety Report 20621021 (Version 2)
Quarter: 2022Q2

REPORT INFORMATION
  Report Type: Other
  Country: US (occurrence: US)
  Receive Date: 20220322
  Receipt Date: 20220428
  Transmission Date: 20220721
  Serious: Yes (Hospitalization)
  Sender: FDA-Public Use
  Company Number: US-Covis Pharma GmbH-2022COV00797

PATIENT
  Age: 43 Year
  Sex: Female
  Weight: 126.21 kg

DRUGS (1)
  1. MAKENA [Suspect]
     Active Substance: HYDROXYPROGESTERONE CAPROATE
     Indication: Premature delivery
     Route: 058
     Dates: end: 20220302

REACTIONS (3)
  - Amniotic fluid index decreased [Recovered/Resolved]
  - Gestational hypertension [Unknown]
  - Product administration error [Unknown]

NARRATIVE: CASE EVENT DATE: 20220308
